FAERS Safety Report 12669943 (Version 2)
Quarter: 2016Q4

REPORT INFORMATION
  Report Type: Spontaneous
  Country: US (occurrence: US)
  Receive Date: 20160820
  Receipt Date: 20161110
  Transmission Date: 20170207
  Serious: No
  Sender: FDA-Public Use
  Company Number: US-009507513-1607USA012999

PATIENT
  Sex: Female
  Weight: 107.94 kg

DRUGS (2)
  1. NEXPLANON [Suspect]
     Active Substance: ETONOGESTREL
     Dosage: 68 MG, EVERY 3 YEARS
     Route: 059
  2. NEXPLANON [Suspect]
     Active Substance: ETONOGESTREL
     Dosage: 68 MG, EVERY 3 YEARS
     Route: 059
     Dates: start: 20160622

REACTIONS (6)
  - Product quality issue [Unknown]
  - No adverse event [Unknown]
  - Device expulsion [Recovered/Resolved]
  - Complication associated with device [Recovered/Resolved]
  - Drug dose omission [Unknown]
  - Device difficult to use [Recovered/Resolved]

NARRATIVE: CASE EVENT DATE: 2016
